FAERS Safety Report 21034846 (Version 1)
Quarter: 2022Q3

REPORT INFORMATION
  Report Type: Spontaneous
  Country: MY (occurrence: MY)
  Receive Date: 20220701
  Receipt Date: 20220701
  Transmission Date: 20221026
  Serious: Yes (Other)
  Sender: FDA-Public Use
  Company Number: MY-ADMA BIOLOGICS INC.-MY-2022ADM000039

PATIENT
  Age: 24 Year
  Sex: Female

DRUGS (2)
  1. ASCENIV [Suspect]
     Active Substance: HUMAN IMMUNOGLOBULIN G
     Indication: Anti-NMDA antibody positive
     Dosage: 0.4 G/KG ONCE DAILY FOR 5 DAYS
  2. METHYLPREDNISOLONE [Concomitant]
     Active Substance: METHYLPREDNISOLONE
     Indication: Anti-NMDA antibody positive
     Dosage: 500 MG, QD

REACTIONS (3)
  - Encephalopathy [Recovered/Resolved]
  - Catatonia [Recovered/Resolved]
  - Anaphylactic reaction [Recovered/Resolved]
